FAERS Safety Report 14719827 (Version 1)
Quarter: 2018Q2

REPORT INFORMATION
  Report Type: Spontaneous
  Country: US (occurrence: US)
  Receive Date: 20180405
  Receipt Date: 20180405
  Transmission Date: 20180711
  Serious: Yes (Other)
  Sender: FDA-Public Use
  Company Number: US-TEVA-2018-US-877139

PATIENT
  Sex: Male

DRUGS (1)
  1. QNASL [Suspect]
     Active Substance: BECLOMETHASONE DIPROPIONATE
     Dosage: 80MCG 2 SPRAYS IN EACH NOSTRIL ONCE A DAY, 3 WEEKS AGO
     Route: 065
     Dates: start: 201803

REACTIONS (1)
  - Cataract [Unknown]
